FAERS Safety Report 11246749 (Version 4)
Quarter: 2017Q3

REPORT INFORMATION
  Report Type: Report from Study
  Country: NL (occurrence: NL)
  Receive Date: 20150708
  Receipt Date: 20170705
  Transmission Date: 20171127
  Serious: Yes (Death, Hospitalization)
  Sender: FDA-Public Use
  Company Number: PHHO2015NL011285

PATIENT
  Sex: Male

DRUGS (2)
  1. SANDIMMUN [Suspect]
     Active Substance: CYCLOSPORINE
     Indication: GRAFT VERSUS HOST DISEASE
     Dosage: 300 MG, BID
     Route: 048
     Dates: start: 20150607
  2. MYCOPHENOLIC ACID. [Suspect]
     Active Substance: MYCOPHENOLIC ACID
     Indication: GRAFT VERSUS HOST DISEASE
     Dosage: 1000 MG, TID
     Route: 048
     Dates: start: 20150610

REACTIONS (5)
  - Renal failure [Fatal]
  - Multiple organ dysfunction syndrome [Fatal]
  - Hepatic failure [Fatal]
  - Cardiomyopathy [Fatal]
  - Respiratory failure [Fatal]

NARRATIVE: CASE EVENT DATE: 20150617
